FAERS Safety Report 10777140 (Version 1)
Quarter: 2015Q1

REPORT INFORMATION
  Report Type: Spontaneous
  Country: US (occurrence: US)
  Receive Date: 20150209
  Receipt Date: 20150209
  Transmission Date: 20150721
  Serious: Yes (Hospitalization)
  Sender: FDA-Public Use
  Company Number: PHHY2015US014938

PATIENT
  Age: 68 Year
  Sex: Female

DRUGS (1)
  1. CLOFAZIMINE [Suspect]
     Active Substance: CLOFAZIMINE
     Indication: MYCOBACTERIUM ABSCESSUS INFECTION
     Dosage: 200 MG, QD
     Route: 048

REACTIONS (15)
  - Faeces discoloured [Unknown]
  - Mucosal haemorrhage [Unknown]
  - Malabsorption [Unknown]
  - Abdominal tenderness [Unknown]
  - Weight decreased [Unknown]
  - Abdominal pain lower [Unknown]
  - Skin hyperpigmentation [Unknown]
  - Lower gastrointestinal haemorrhage [Unknown]
  - Haematochezia [Unknown]
  - Diarrhoea [Recovering/Resolving]
  - Small intestinal haemorrhage [Unknown]
  - Gastroenteritis [Unknown]
  - Histiocytosis [Unknown]
  - Facial wasting [Unknown]
  - Malnutrition [Unknown]
